FAERS Safety Report 7125269-4 (Version None)
Quarter: 2010Q4

REPORT INFORMATION
  Report Type: 
  Country: None (occurrence: None)
  Receive Date: 20101129
  Receipt Date: 20101115
  Transmission Date: 20110411
  Serious: Yes (Other)
  Sender: FDA-Public Use
  Company Number: PHHY2010US77331

PATIENT
  Sex: Female

DRUGS (2)
  1. GLEEVEC [Suspect]
     Indication: ANGIOSARCOMA
     Dosage: 400 MG, QD
     Route: 048
     Dates: start: 20100201
  2. GLEEVEC [Suspect]
     Dosage: 200 MG
     Route: 048
     Dates: start: 20100301, end: 20101001

REACTIONS (5)
  - ANGIOSARCOMA [None]
  - MALIGNANT NEOPLASM PROGRESSION [None]
  - NEOPLASM RECURRENCE [None]
  - PANCYTOPENIA [None]
  - TUMOUR EXCISION [None]
